FAERS Safety Report 4699578-2 (Version None)
Quarter: 2005Q2

REPORT INFORMATION
  Report Type: 
  Country: None (occurrence: None)
  Receive Date: 20050622
  Receipt Date: 20050616
  Transmission Date: 20051028
  Serious: No
  Sender: FDA-Public Use
  Company Number: 2005-129468-NL

PATIENT

DRUGS (2)
  1. MIRTAZAPINE [Suspect]
     Dosage: 15 MG
  2. ATENOLOL [Concomitant]

REACTIONS (1)
  - TRANSIENT ISCHAEMIC ATTACK [None]
